FAERS Safety Report 25999319 (Version 2)
Quarter: 2025Q4

REPORT INFORMATION
  Report Type: Report from Study
  Country: CN (occurrence: CN)
  Receive Date: 20251105
  Receipt Date: 20251119
  Transmission Date: 20260117
  Serious: Yes (Other)
  Sender: ROCHE
  Company Number: CN-ROCHE-10000054101

PATIENT
  Age: 68 Year
  Sex: Female

DRUGS (79)
  1. KADCYLA [Suspect]
     Active Substance: ADO-TRASTUZUMAB EMTANSINE
     Indication: Breast cancer
     Dosage: ON 19/APR/2024, 10/MAY/2024, 31/MAY/2024, AND 21/JUN/2024, RECEIVED DOSE (160 MG)
     Route: 042
  2. Megestrol Acetate Dispersible [Concomitant]
     Route: 048
     Dates: start: 20240615
  3. Megestrol Acetate Dispersible [Concomitant]
     Route: 048
     Dates: start: 20240614, end: 20240708
  4. Megestrol Acetate Dispersible [Concomitant]
     Route: 048
     Dates: start: 20240422, end: 20240511
  5. Megestrol Acetate Dispersible [Concomitant]
     Route: 048
     Dates: start: 20240604
  6. Megestrol Acetate Dispersible [Concomitant]
     Route: 048
     Dates: start: 20240715
  7. Megestrol Acetate Dispersible [Concomitant]
     Route: 048
     Dates: start: 20240715, end: 20240807
  8. Megestrol Acetate Dispersible [Concomitant]
     Route: 048
     Dates: start: 20240404, end: 20240414
  9. Megestrol Acetate Dispersible [Concomitant]
     Route: 048
     Dates: start: 20240310, end: 20240320
  10. Megestrol Acetate Dispersible [Concomitant]
     Route: 048
     Dates: start: 20240422, end: 20240512
  11. Rabeprazole sodium enteric-coated tablets [Concomitant]
     Route: 048
     Dates: start: 20240708, end: 202407
  12. Rabeprazole sodium enteric-coated tablets [Concomitant]
     Route: 048
     Dates: start: 20240422, end: 20240520
  13. Rabeprazole sodium enteric-coated tablets [Concomitant]
     Route: 048
     Dates: start: 20240313, end: 20240327
  14. Rabeprazole sodium enteric-coated tablets [Concomitant]
     Route: 048
     Dates: start: 20240404, end: 20240418
  15. MAGNESIUM ISOGLYCYRRHIZINATE [Concomitant]
     Active Substance: MAGNESIUM ISOGLYCYRRHIZINATE
     Route: 042
     Dates: start: 20240628, end: 20240708
  16. Esomeprazole for Injection [Concomitant]
     Route: 042
     Dates: start: 20240628, end: 20240707
  17. GLUTATHIONE [Concomitant]
     Active Substance: GLUTATHIONE
     Route: 042
     Dates: start: 20240715
  18. GLUTATHIONE [Concomitant]
     Active Substance: GLUTATHIONE
     Route: 042
     Dates: start: 20240716, end: 20240807
  19. ROSUVASTATIN CALCIUM [Concomitant]
     Active Substance: ROSUVASTATIN CALCIUM
     Indication: Hyperlipidaemia
     Route: 048
     Dates: start: 20240506, end: 20240518
  20. ROSUVASTATIN CALCIUM [Concomitant]
     Active Substance: ROSUVASTATIN CALCIUM
     Dates: start: 20240628
  21. ROSUVASTATIN CALCIUM [Concomitant]
     Active Substance: ROSUVASTATIN CALCIUM
     Route: 048
     Dates: start: 20240628, end: 202407
  22. ROSUVASTATIN CALCIUM [Concomitant]
     Active Substance: ROSUVASTATIN CALCIUM
     Route: 048
     Dates: start: 20240628, end: 202406
  23. ROSUVASTATIN CALCIUM [Concomitant]
     Active Substance: ROSUVASTATIN CALCIUM
     Route: 048
     Dates: start: 20240506, end: 20240520
  24. METHYLPREDNISOLONE SODIUM SUCCINATE [Concomitant]
     Active Substance: METHYLPREDNISOLONE SODIUM SUCCINATE
     Route: 042
     Dates: start: 20240808, end: 20240808
  25. METHYLPREDNISOLONE SODIUM SUCCINATE [Concomitant]
     Active Substance: METHYLPREDNISOLONE SODIUM SUCCINATE
     Route: 042
     Dates: start: 20240725, end: 20240725
  26. METHYLPREDNISOLONE SODIUM SUCCINATE [Concomitant]
     Active Substance: METHYLPREDNISOLONE SODIUM SUCCINATE
     Route: 042
     Dates: start: 20240726, end: 20240809
  27. METHYLPREDNISOLONE SODIUM SUCCINATE [Concomitant]
     Active Substance: METHYLPREDNISOLONE SODIUM SUCCINATE
     Dosage: FREQUENCY: OTHER
     Route: 042
     Dates: start: 20240808, end: 20240808
  28. FUROSEMIDE [Concomitant]
     Active Substance: FUROSEMIDE
     Route: 042
     Dates: start: 20240808, end: 20240808
  29. VITAMIN K1 [Concomitant]
     Active Substance: PHYTONADIONE
     Route: 030
     Dates: start: 20240808, end: 20240808
  30. TRAMADOL HYDROCHLORIDE [Concomitant]
     Active Substance: TRAMADOL HYDROCHLORIDE
     Route: 030
     Dates: start: 20240807, end: 20240807
  31. ALBUMIN HUMAN [Concomitant]
     Active Substance: ALBUMIN HUMAN
     Route: 042
     Dates: start: 20240805, end: 20240805
  32. ALBUMIN HUMAN [Concomitant]
     Active Substance: ALBUMIN HUMAN
     Route: 042
     Dates: start: 20240802, end: 20240802
  33. ALBUMIN HUMAN [Concomitant]
     Active Substance: ALBUMIN HUMAN
     Route: 042
     Dates: start: 20240727, end: 20240727
  34. ALBUMIN HUMAN [Concomitant]
     Active Substance: ALBUMIN HUMAN
     Route: 042
     Dates: start: 20240724, end: 20240724
  35. ALBUMIN HUMAN [Concomitant]
     Active Substance: ALBUMIN HUMAN
     Route: 042
     Dates: start: 20240806, end: 20240806
  36. RIVAROXABAN [Concomitant]
     Active Substance: RIVAROXABAN
     Route: 048
     Dates: start: 20240723, end: 20240723
  37. RIVAROXABAN [Concomitant]
     Active Substance: RIVAROXABAN
     Route: 048
     Dates: start: 20240723, end: 20240807
  38. SODIUM CHLORIDE [Concomitant]
     Active Substance: SODIUM CHLORIDE
     Route: 042
     Dates: start: 20240807, end: 20240809
  39. SODIUM CHLORIDE [Concomitant]
     Active Substance: SODIUM CHLORIDE
     Route: 042
     Dates: start: 20240806, end: 20240806
  40. ALANYL GLUTAMINE [Concomitant]
     Active Substance: ALANYL GLUTAMINE
     Route: 042
     Dates: start: 20240807, end: 20240809
  41. .ALPHA.-TOCOPHEROL, DL-\ERGOCALCIFEROL\PHYTONADIONE\VITAMIN A PALMITAT [Concomitant]
     Active Substance: .ALPHA.-TOCOPHEROL, DL-\ERGOCALCIFEROL\PHYTONADIONE\VITAMIN A PALMITATE
     Route: 042
     Dates: start: 20240807, end: 20240809
  42. AMINO ACIDS, SOURCE UNSPECIFIED [Concomitant]
     Active Substance: AMINO ACIDS, SOURCE UNSPECIFIED
     Route: 042
     Dates: start: 20240806, end: 20240806
  43. TEPRENONE [Concomitant]
     Active Substance: TEPRENONE
     Route: 048
     Dates: start: 20240726, end: 20240807
  44. FAT EMULSION NOS [Concomitant]
     Active Substance: EGG PHOSPHOLIPIDS\SAFFLOWER OIL\SOYBEAN OIL
     Route: 030
     Dates: start: 20240806, end: 20240806
  45. FAT EMULSION NOS [Concomitant]
     Active Substance: EGG PHOSPHOLIPIDS\SAFFLOWER OIL\SOYBEAN OIL
     Route: 030
     Dates: start: 20240807, end: 20240809
  46. HUMAN INTERLEUKIN-11 [Concomitant]
     Indication: Platelet count decreased
     Route: 058
     Dates: start: 20240808, end: 20240808
  47. HUMAN INTERLEUKIN-11 [Concomitant]
     Route: 058
     Dates: start: 20240703, end: 20240706
  48. LEUCOGEN [Concomitant]
     Active Substance: LEUCOGEN
     Route: 048
     Dates: start: 20240513, end: 20240528
  49. LEUCOGEN [Concomitant]
     Active Substance: LEUCOGEN
     Route: 048
     Dates: start: 20240422, end: 20240507
  50. LEUCOGEN [Concomitant]
     Active Substance: LEUCOGEN
     Route: 048
     Dates: start: 20240422, end: 20240513
  51. LEUCOGEN [Concomitant]
     Active Substance: LEUCOGEN
     Route: 048
     Dates: start: 20240422, end: 20240508
  52. LEUCOGEN [Concomitant]
     Active Substance: LEUCOGEN
     Route: 048
     Dates: start: 20240604, end: 20240620
  53. Polyene Phosphatidylcholine Capsules [Concomitant]
     Route: 048
     Dates: end: 20240607
  54. Ademetionine for Injection [Concomitant]
     Route: 042
     Dates: start: 20240806, end: 20240809
  55. Mannitol injection [Concomitant]
     Route: 042
     Dates: start: 20240313, end: 20240316
  56. DEXAMETHASONE SODIUM PHOSPHATE [Concomitant]
     Active Substance: DEXAMETHASONE SODIUM PHOSPHATE
     Dates: start: 20240313, end: 20240313
  57. THYMALFASIN [Concomitant]
     Active Substance: THYMALFASIN
     Route: 058
     Dates: start: 20240404, end: 20240425
  58. THYMALFASIN [Concomitant]
     Active Substance: THYMALFASIN
     Route: 058
     Dates: start: 20240506, end: 20240527
  59. THYMALFASIN [Concomitant]
     Active Substance: THYMALFASIN
     Route: 058
     Dates: start: 20240529, end: 20240619
  60. THYMALFASIN [Concomitant]
     Active Substance: THYMALFASIN
     Route: 058
     Dates: start: 20240331, end: 20240405
  61. THYMALFASIN [Concomitant]
     Active Substance: THYMALFASIN
     Route: 058
     Dates: start: 20240617, end: 20240708
  62. POTASSIUM CHLORIDE [Concomitant]
     Active Substance: POTASSIUM CHLORIDE
     Route: 042
     Dates: start: 20240806, end: 20240806
  63. POTASSIUM CHLORIDE [Concomitant]
     Active Substance: POTASSIUM CHLORIDE
     Route: 042
     Dates: start: 20240807, end: 20240809
  64. POTASSIUM CHLORIDE [Concomitant]
     Active Substance: POTASSIUM CHLORIDE
     Route: 042
     Dates: start: 20240802, end: 20240802
  65. POTASSIUM CHLORIDE [Concomitant]
     Active Substance: POTASSIUM CHLORIDE
     Route: 042
     Dates: start: 20240715
  66. DEXTROSE [Concomitant]
     Active Substance: DEXTROSE MONOHYDRATE
     Route: 050
     Dates: start: 20240807, end: 20240809
  67. Batilol Tablets [Concomitant]
     Route: 048
     Dates: start: 20240604, end: 20240704
  68. Batilol Tablets [Concomitant]
     Route: 048
     Dates: start: 20240422
  69. XIAO YU KANG Jiao nang [Concomitant]
     Route: 048
     Dates: start: 20240628, end: 20240708
  70. VITAMINS [Concomitant]
     Active Substance: VITAMINS
     Route: 042
     Dates: start: 20240806, end: 20240806
  71. VITAMINS [Concomitant]
     Active Substance: VITAMINS
     Route: 042
     Dates: start: 20240807, end: 20240809
  72. Multi-Trace Elements injection [Concomitant]
     Route: 042
     Dates: start: 20240807, end: 20240809
  73. Multi-Trace Elements injection [Concomitant]
     Route: 042
     Dates: start: 20240806, end: 20240806
  74. AMINO ACIDS AND GLUCOSE [Concomitant]
     Route: 042
     Dates: start: 20240723, end: 20240801
  75. AMINO ACIDS AND GLUCOSE [Concomitant]
     Route: 042
     Dates: start: 20240723, end: 20240723
  76. Sodium Houttuyfonate [Concomitant]
     Dosage: FRE: BIW
     Route: 058
     Dates: start: 20240506, end: 20240528
  77. Sodium Houttuyfonate [Concomitant]
     Dosage: FRE: BIW
     Route: 058
     Dates: start: 20240529, end: 20240616
  78. Sodium Houttuyfonate [Concomitant]
     Dosage: FRE: BIW
     Route: 058
     Dates: start: 20240617, end: 202406
  79. Sodium Houttuyfonate [Concomitant]
     Dosage: FRE: BIW
     Route: 058
     Dates: start: 20240404, end: 20240505

REACTIONS (4)
  - Platelet count decreased [Recovered/Resolved]
  - Hypokalaemia [Recovered/Resolved]
  - Hepatic failure [Not Recovered/Not Resolved]
  - Arrhythmia [Not Recovered/Not Resolved]

NARRATIVE: CASE EVENT DATE: 20240401
